FAERS Safety Report 5102640-3 (Version None)
Quarter: 2006Q3

REPORT INFORMATION
  Report Type: 
  Country: None (occurrence: None)
  Receive Date: 20060908
  Receipt Date: 20060828
  Transmission Date: 20061208
  Serious: Yes (Hospitalization, Other)
  Sender: FDA-Public Use
  Company Number: 2006098721

PATIENT
  Age: 74 Year
  Sex: Male
  Weight: 84.7 kg

DRUGS (1)
  1. LYRICA [Suspect]
     Indication: MENIERE'S DISEASE
     Dosage: 150 MG (75 MG, 2 IN 1 D), ORAL
     Route: 048
     Dates: start: 20060601, end: 20060727

REACTIONS (8)
  - ANGINA PECTORIS [None]
  - ANXIETY DISORDER [None]
  - CONDITION AGGRAVATED [None]
  - NAUSEA [None]
  - PALPITATIONS [None]
  - PANIC ATTACK [None]
  - TACHYCARDIA [None]
  - VERTIGO [None]
